FAERS Safety Report 13080255 (Version 2)
Quarter: 2017Q1

REPORT INFORMATION
  Report Type: Spontaneous
  Country: CA (occurrence: CA)
  Receive Date: 20170103
  Receipt Date: 20170302
  Transmission Date: 20170428
  Serious: Yes (Other)
  Sender: FDA-Public Use
  Company Number: CA-ASTELLAS-2017US000140

PATIENT
  Age: 37 Year
  Sex: Female

DRUGS (4)
  1. METHOTREXATE. [Suspect]
     Active Substance: METHOTREXATE
     Indication: PROPHYLAXIS AGAINST GRAFT VERSUS HOST DISEASE
     Dosage: ADMINISTERED ON DAYS 1 (15MG/M2), 3, 6, AND 11 (10MG/M2, DAILY)
     Route: 065
  2. ANTITHYMOCYTE IMMUNOGLOBULIN [Suspect]
     Active Substance: THYMOCYTE IMMUNE GLOBULIN NOS
     Indication: PROPHYLAXIS AGAINST GRAFT VERSUS HOST DISEASE
     Dosage: ADMINISTERED ON DAY -2 (0.5MG/KG)
     Route: 065
  3. PROGRAF [Suspect]
     Active Substance: TACROLIMUS\TACROLIMUS ANHYDROUS
     Indication: PROPHYLAXIS AGAINST GRAFT VERSUS HOST DISEASE
     Dosage: 2-3 MG, EVERY 12 HOURS
     Route: 048
  4. PALIFERMIN [Suspect]
     Active Substance: PALIFERMIN
     Indication: PROPHYLAXIS AGAINST GRAFT VERSUS HOST DISEASE
     Dosage: 60 ?G/KG, ONCE DAILY ADMINISTERED ON DAYS -6, -5, AND -4
     Route: 065

REACTIONS (3)
  - Cytomegalovirus viraemia [Recovered/Resolved]
  - Off label use [Unknown]
  - Mucosal inflammation [Recovered/Resolved]

NARRATIVE: CASE EVENT DATE: 20110525
